FAERS Safety Report 5165343-5 (Version None)
Quarter: 2006Q4

REPORT INFORMATION
  Report Type: 
  Country: None (occurrence: None)
  Receive Date: 20061206
  Receipt Date: 20061128
  Transmission Date: 20070319
  Serious: Yes (Life-Threatening)
  Sender: FDA-Public Use
  Company Number: 2006AP05632

PATIENT
  Age: 20426 Day
  Sex: Female

DRUGS (4)
  1. CRESTOR [Suspect]
     Indication: HYPERLIPIDAEMIA
     Route: 048
     Dates: start: 20060106
  2. CONCOR [Concomitant]
     Route: 048
     Dates: start: 20050809
  3. NORVASC [Concomitant]
     Route: 048
     Dates: start: 20050809
  4. MYKROX [Concomitant]
     Route: 048
     Dates: start: 20051014

REACTIONS (1)
  - HEPATOTOXICITY [None]
